FAERS Safety Report 4637243-8 (Version None)
Quarter: 2005Q2

REPORT INFORMATION
  Report Type: 
  Country: None (occurrence: None)
  Receive Date: 20050325
  Receipt Date: 20041206
  Transmission Date: 20051028
  Serious: No
  Sender: FDA-Public Use
  Company Number: USA041285252

PATIENT
  Age: 69 Year
  Sex: Female

DRUGS (1)
  1. FORTEO [Suspect]
     Indication: OSTEOPOROSIS
     Dosage: 20 UG DAY
     Dates: start: 20041202

REACTIONS (6)
  - ASTHENIA [None]
  - INJECTION SITE ERYTHEMA [None]
  - NERVOUSNESS [None]
  - SCRATCH [None]
  - SKIN SWELLING [None]
  - TREMOR [None]
